FAERS Safety Report 19809418 (Version 1)
Quarter: 2021Q3

REPORT INFORMATION
  Report Type: Report from Study
  Country: US (occurrence: US)
  Receive Date: 20210909
  Receipt Date: 20210909
  Transmission Date: 20211014
  Serious: Yes (Other)
  Sender: FDA-Public Use
  Company Number: US-MYLANLABS-2021M1059125

PATIENT

DRUGS (7)
  1. PREDNISONE. [Suspect]
     Active Substance: PREDNISONE
     Indication: B-CELL LYMPHOMA
     Dosage: ORAL OR EQUIVALENT IV DOSE IN A CYCLE OF 21 DAYS; 100MG OR EQUIVALENT DOSE DAILY
     Route: 065
  2. RITUXIMAB. [Suspect]
     Active Substance: RITUXIMAB
     Indication: B-CELL LYMPHOMA
     Dosage: 100 MILLIGRAM/SQ. METER, QD, DURING CYCLE 1: ADMINISTERED IN TWO DIVIDED DOSES...
     Route: 042
  3. BRENTUXIMAB VEDOTIN [Suspect]
     Active Substance: BRENTUXIMAB VEDOTIN
     Indication: B-CELL LYMPHOMA
     Dosage: ADMINISTERED ON DAY 1 IN A CYCLE OF 21 DAYS
     Route: 042
  4. RITUXIMAB. [Suspect]
     Active Substance: RITUXIMAB
     Dosage: 275 MILLIGRAM/SQ. METER, QD
     Route: 042
  5. RITUXIMAB. [Suspect]
     Active Substance: RITUXIMAB
     Dosage: 375 MILLIGRAM/SQ. METER, QD
     Route: 042
  6. CYCLOPHOSPHAMIDE. [Suspect]
     Active Substance: CYCLOPHOSPHAMIDE
     Indication: B-CELL LYMPHOMA
     Dosage: 750 MILLIGRAM/SQ. METER, QD, CYCLE OF 21 DAYS
     Route: 042
  7. DOXORUBICIN [Suspect]
     Active Substance: DOXORUBICIN
     Indication: B-CELL LYMPHOMA
     Dosage: 50 MILLIGRAM/SQ. METER, QD, CYCLE OF 21 DAYS
     Route: 042

REACTIONS (2)
  - Sepsis [Unknown]
  - Cardiomyopathy [Unknown]
